FAERS Safety Report 20454847 (Version 5)
Quarter: 2022Q4

REPORT INFORMATION
  Report Type: Spontaneous
  Country: IN (occurrence: IN)
  Receive Date: 20220210
  Receipt Date: 20221024
  Transmission Date: 20230112
  Serious: Yes (Hospitalization, Other)
  Sender: FDA-Public Use
  Company Number: IN-PFIZER INC-202200158395

PATIENT
  Age: 64 Year
  Sex: Female

DRUGS (9)
  1. PALBOCICLIB [Suspect]
     Active Substance: PALBOCICLIB
     Dosage: 125 MG, CYCLIC (ONCE DAILY 21/28 DAYS)
     Route: 048
     Dates: start: 20210225
  2. PALBOCICLIB [Suspect]
     Active Substance: PALBOCICLIB
     Dosage: 100 MG, 1X/DAY
     Route: 048
     Dates: start: 20210727
  3. PALBOCICLIB [Suspect]
     Active Substance: PALBOCICLIB
     Dosage: 100 MG, 1X/DAY
     Route: 048
     Dates: start: 20210810
  4. LETROZOLE [Concomitant]
     Active Substance: LETROZOLE
     Dosage: 2.5 MG, 1X/DAY
  5. DENOSUMAB [Concomitant]
     Active Substance: DENOSUMAB
     Dosage: 120 MG, MONTHLY
     Route: 058
     Dates: start: 202202
  6. PAN [Concomitant]
     Dosage: BEFORE BREAKFAST
  7. SUCRAL-O [Concomitant]
     Dosage: 1 TSP  BEFORE DINNER X2 WEEKS.
  8. LOOZ [Concomitant]
     Dosage: @ 10 PM
  9. MUCOBENZ [Concomitant]
     Dosage: MOUTH WASH THRICE A DAY AFTER MEALS.

REACTIONS (12)
  - Neutropenia [Unknown]
  - Diarrhoea [Unknown]
  - Asthenia [Unknown]
  - Back pain [Unknown]
  - Gastritis [Unknown]
  - Platelet count decreased [Unknown]
  - Neoplasm progression [Unknown]
  - Haemoglobin decreased [Unknown]
  - Neutrophil percentage decreased [Unknown]
  - White blood cell count decreased [Unknown]
  - COVID-19 [Unknown]
  - Aspartate aminotransferase increased [Unknown]

NARRATIVE: CASE EVENT DATE: 20210505
